FAERS Safety Report 5842612-4 (Version None)
Quarter: 2008Q3

REPORT INFORMATION
  Report Type: 
  Country: None (occurrence: None)
  Receive Date: 20080812
  Receipt Date: 20080730
  Transmission Date: 20090109
  Serious: Yes (Hospitalization)
  Sender: FDA-Public Use
  Company Number: US-ELI_LILLY_AND_COMPANY-US200807006165

PATIENT

DRUGS (3)
  1. FORTEO [Suspect]
     Dates: start: 20070701, end: 20080501
  2. LEFLUNOMIDE [Concomitant]
  3. PREDNISONE TAB [Concomitant]

REACTIONS (2)
  - BACK PAIN [None]
  - SPINAL FRACTURE [None]
